FAERS Safety Report 23623741 (Version 1)
Quarter: 2024Q1

REPORT INFORMATION
  Report Type: Spontaneous
  Country: IN (occurrence: IN)
  Receive Date: 20240312
  Receipt Date: 20240312
  Transmission Date: 20240409
  Serious: Yes (Death)
  Sender: FDA-Public Use
  Company Number: IN-GE HEALTHCARE-2024CSU002274

PATIENT
  Age: 49 Year
  Sex: Female

DRUGS (1)
  1. VISIPAQUE [Suspect]
     Active Substance: IODIXANOL
     Indication: Computerised tomogram abdomen
     Dosage: 65 ML, TOTAL
     Route: 042
     Dates: start: 20240306, end: 20240306

REACTIONS (2)
  - Hypovolaemic shock [Fatal]
  - Neurogenic shock [Fatal]

NARRATIVE: CASE EVENT DATE: 20240306
